FAERS Safety Report 25747851 (Version 1)
Quarter: 2025Q3

REPORT INFORMATION
  Report Type: Spontaneous
  Country: US (occurrence: US)
  Receive Date: 20250901
  Receipt Date: 20250901
  Transmission Date: 20251021
  Serious: No
  Sender: MERCK SHARP & DOHME LLC
  Company Number: US-009507513-2323573

PATIENT
  Sex: Female

DRUGS (1)
  1. WELIREG [Suspect]
     Active Substance: BELZUTIFAN
     Indication: Von Hippel-Lindau disease
     Route: 048

REACTIONS (1)
  - Maternal exposure during pregnancy [Unknown]
